FAERS Safety Report 4528874-4 (Version None)
Quarter: 2004Q4

REPORT INFORMATION
  Report Type: 
  Country: None (occurrence: None)
  Receive Date: 20041214
  Receipt Date: 20041206
  Transmission Date: 20050328
  Serious: Yes (Other)
  Sender: FDA-Public Use
  Company Number: TUK2004A00133

PATIENT
  Age: 42 Year
  Sex: Male

DRUGS (3)
  1. ACTOS [Suspect]
     Indication: DIABETES MELLITUS
     Dosage: 15 MG
     Route: 048
     Dates: start: 20040813, end: 20041101
  2. METFORMIN (METFORMIN) [Concomitant]
  3. LANSOPRAZOLE [Concomitant]

REACTIONS (4)
  - AFFECTIVE DISORDER [None]
  - DEPRESSED MOOD [None]
  - FATIGUE [None]
  - LETHARGY [None]
